FAERS Safety Report 5023242-3 (Version None)
Quarter: 2006Q2

REPORT INFORMATION
  Report Type: 
  Country: None (occurrence: None)
  Receive Date: 20060428
  Receipt Date: 20060105
  Transmission Date: 20061013
  Serious: No
  Sender: FDA-Public Use
  Company Number: 012087

PATIENT
  Age: 64 Year
  Sex: Male

DRUGS (2)
  1. PRIALT [Suspect]
     Indication: BACK PAIN
     Dosage: ONCE/HOUR, INTRATHECAL
     Route: 037
     Dates: start: 20050901, end: 20060101
  2. MORPHINE [Concomitant]

REACTIONS (16)
  - ABNORMAL BEHAVIOUR [None]
  - ARTHRALGIA [None]
  - CHEST PAIN [None]
  - DIZZINESS [None]
  - FEELING ABNORMAL [None]
  - GAIT DISTURBANCE [None]
  - HYPERTENSION [None]
  - INFLAMMATION [None]
  - MEMORY IMPAIRMENT [None]
  - NASAL CONGESTION [None]
  - NAUSEA [None]
  - PAIN IN EXTREMITY [None]
  - PAROSMIA [None]
  - SINUS CONGESTION [None]
  - SNEEZING [None]
  - VISION BLURRED [None]
